FAERS Safety Report 5005031-9 (Version None)
Quarter: 2006Q2

REPORT INFORMATION
  Report Type: 
  Country: None (occurrence: None)
  Receive Date: 20060512
  Receipt Date: 20060504
  Transmission Date: 20061013
  Serious: Yes (Hospitalization)
  Sender: FDA-Public Use
  Company Number: 2006BI000060

PATIENT
  Age: 50 Year
  Sex: Male

DRUGS (2)
  1. AVONEX [Suspect]
     Indication: RELAPSING-REMITTING MULTIPLE SCLEROSIS
     Dosage: 30 UG; QW; IM
     Route: 030
     Dates: start: 20020629, end: 20060101
  2. PANTOPRAZOLE SODIUM [Concomitant]

REACTIONS (4)
  - BALANCE DISORDER [None]
  - DYSARTHRIA [None]
  - HEMIPARESIS [None]
  - MULTIPLE SCLEROSIS [None]
